FAERS Safety Report 12860860 (Version 3)
Quarter: 2017Q2

REPORT INFORMATION
  Report Type: Spontaneous
  Country: US (occurrence: US)
  Receive Date: 20161019
  Receipt Date: 20170608
  Transmission Date: 20170830
  Serious: Yes (Hospitalization)
  Sender: FDA-Public Use
  Company Number: US-ASTRAZENECA-2016SF08123

PATIENT
  Age: 59 Year
  Sex: Female
  Weight: 43.5 kg

DRUGS (6)
  1. SPIRVA RESPIMAT [Concomitant]
     Route: 055
     Dates: start: 2013
  2. CALCIUM [Concomitant]
     Active Substance: CALCIUM
     Route: 048
     Dates: start: 2015
  3. SPIRVA RESPIMAT [Concomitant]
     Dosage: ONE INHALATION DAILY
     Route: 055
  4. VENTLIN HFA [Concomitant]
     Dosage: ONE INHALATION DAILY
     Route: 055
     Dates: start: 2013
  5. VITAMIN D [Concomitant]
     Active Substance: CHOLECALCIFEROL
     Indication: VITAMIN D ABNORMAL
     Route: 048
     Dates: start: 2015
  6. SYMBICORT [Suspect]
     Active Substance: BUDESONIDE\FORMOTEROL FUMARATE DIHYDRATE
     Indication: CHRONIC OBSTRUCTIVE PULMONARY DISEASE
     Dosage: 160/4.5MCG, TWO PUFFS TWICE DAILY
     Route: 055
     Dates: start: 2012

REACTIONS (13)
  - Product use issue [Unknown]
  - Off label use [Unknown]
  - Respiratory failure [Recovered/Resolved]
  - Pneumonia [Recovered/Resolved]
  - Vitamin D decreased [Recovering/Resolving]
  - Device issue [Unknown]
  - Chronic obstructive pulmonary disease [Recovered/Resolved]
  - Weight decreased [Unknown]
  - Oropharyngeal pain [Recovered/Resolved]
  - Dyspnoea [Recovered/Resolved]
  - Osteoporosis [Not Recovered/Not Resolved]
  - Intentional product misuse [Unknown]
  - Respiratory syncytial virus infection [Recovered/Resolved]

NARRATIVE: CASE EVENT DATE: 2013
